FAERS Safety Report 4893557-8 (Version None)
Quarter: 2006Q1

REPORT INFORMATION
  Report Type: 
  Country: None (occurrence: None)
  Receive Date: 20060127
  Receipt Date: 20051202
  Transmission Date: 20060701
  Serious: Yes (Other)
  Sender: FDA-Public Use
  Company Number: JP-BRISTOL-MYERS SQUIBB COMPANY-13203120

PATIENT
  Age: 26 Year
  Sex: Female

DRUGS (2)
  1. KENACORT-A OPHTHALMIC OINTMENT [Suspect]
     Indication: RETINAL VEIN OCCLUSION
     Route: 031
     Dates: start: 20040929, end: 20040929
  2. CRAVIT [Concomitant]
     Route: 031
     Dates: start: 20040929, end: 20041005

REACTIONS (1)
  - RETINAL PIGMENT EPITHELIOPATHY [None]
